FAERS Safety Report 10140462 (Version 1)
Quarter: 2014Q2

REPORT INFORMATION
  Report Type: Spontaneous
  Country: CH (occurrence: CH)
  Receive Date: 20140429
  Receipt Date: 20140429
  Transmission Date: 20141212
  Serious: Yes (Other)
  Sender: FDA-Public Use
  Company Number: CH-CELGENEUS-151-21880-14042529

PATIENT
  Sex: Male
  Weight: 66 kg

DRUGS (18)
  1. REVLIMID [Suspect]
     Indication: PLASMA CELL MYELOMA
     Dosage: 10 MILLIGRAM
     Route: 048
     Dates: start: 20131210, end: 20140106
  2. REVLIMID [Suspect]
     Route: 048
     Dates: start: 200904, end: 200907
  3. REVLIMID [Suspect]
     Dosage: 10 MILLIGRAM
     Route: 048
     Dates: start: 20140107
  4. ASPIRINE [Concomitant]
     Indication: THROMBOSIS PROPHYLAXIS
     Dosage: 100 MILLIGRAM
     Route: 048
     Dates: start: 20130710
  5. ALLOPURINOL [Concomitant]
     Indication: PROPHYLAXIS
     Dosage: 300 MILLIGRAM
     Route: 048
     Dates: start: 20131210
  6. BACTRIM FORTE [Concomitant]
     Indication: PROPHYLAXIS
     Dosage: NOT PROVIDED
     Route: 048
     Dates: start: 20130710
  7. ZOMETA [Concomitant]
     Indication: STEM CELL TRANSPLANT
     Route: 065
     Dates: start: 2005, end: 2007
  8. ZOMETA [Concomitant]
     Route: 065
  9. BENDAMUSTINE [Concomitant]
     Indication: PLASMA CELL MYELOMA
     Dosage: 125 MILLIGRAM
     Route: 041
  10. BENDAMUSTINE [Concomitant]
     Route: 065
     Dates: start: 20131015, end: 20131112
  11. BENDAMUSTINE [Concomitant]
     Route: 065
     Dates: start: 20131210
  12. BENDAMUSTINE [Concomitant]
     Route: 065
     Dates: start: 20140107
  13. DEXAMETHASONE [Concomitant]
     Indication: PLASMA CELL MYELOMA
     Dosage: 20 MILLIGRAM
     Route: 048
     Dates: start: 20131210, end: 20131211
  14. DEXAMETHASONE [Concomitant]
     Route: 048
     Dates: start: 20040817, end: 20041206
  15. DEXAMETHASONE [Concomitant]
     Dosage: 5.7143 MILLIGRAM
     Route: 048
     Dates: start: 201002, end: 201310
  16. DEXAMETHASONE [Concomitant]
     Dosage: MILLIGRAM
     Route: 048
     Dates: start: 20131015, end: 20131112
  17. DEXAMETHASONE [Concomitant]
     Route: 048
     Dates: start: 20131210
  18. DEXAMETHASONE [Concomitant]
     Route: 048
     Dates: start: 20140107

REACTIONS (4)
  - Osteolysis [Unknown]
  - Compression fracture [Unknown]
  - Chest pain [Unknown]
  - Back pain [Unknown]
